FAERS Safety Report 22045276 (Version 1)
Quarter: 2023Q1

REPORT INFORMATION
  Report Type: Spontaneous
  Country: CN (occurrence: CN)
  Receive Date: 20230228
  Receipt Date: 20230228
  Transmission Date: 20230417
  Serious: Yes (Other)
  Sender: FDA-Public Use
  Company Number: CN-PFIZER INC-PV202300035438

PATIENT
  Age: 25 Year
  Sex: Female
  Weight: 55 kg

DRUGS (3)
  1. CYTARABINE [Suspect]
     Active Substance: CYTARABINE
     Indication: T-cell type acute leukaemia
     Dosage: 150 MG, D1-5
     Route: 041
     Dates: start: 20230207, end: 20230212
  2. HERBALS [Concomitant]
     Active Substance: HERBALS
     Indication: Supplementation therapy
     Dosage: 50 ML, 1X/DAY
     Route: 041
     Dates: start: 20230207, end: 20230213
  3. SODIUM CHLORIDE [Concomitant]
     Active Substance: SODIUM CHLORIDE
     Indication: Vehicle solution use
     Dosage: 100 ML, 1X/DAY
     Route: 041
     Dates: start: 20230207, end: 20230212

REACTIONS (3)
  - Agranulocytosis [Recovering/Resolving]
  - Myelosuppression [Recovering/Resolving]
  - Asthenia [Recovering/Resolving]

NARRATIVE: CASE EVENT DATE: 20230213
